FAERS Safety Report 9558230 (Version 1)
Quarter: 2013Q3

REPORT INFORMATION
  Report Type: Report from Study
  Country: DE (occurrence: DE)
  Receive Date: 20130926
  Receipt Date: 20130926
  Transmission Date: 20140515
  Serious: No
  Sender: FDA-Public Use
  Company Number: PHHY2013DE104675

PATIENT
  Sex: Female

DRUGS (12)
  1. AMN107 [Suspect]
     Indication: CHRONIC MYELOID LEUKAEMIA
     Dosage: 600 MG, PER DAY
     Route: 048
     Dates: start: 20120216
  2. KEPPRA [Concomitant]
     Dosage: UNK
  3. ZONEGRAN [Concomitant]
     Dosage: UNK
  4. CITALOPRAM [Concomitant]
     Dosage: UNK
  5. ASS [Concomitant]
     Dosage: UNK
  6. SIMVASTATIN [Concomitant]
     Dosage: UNK
  7. OMEP [Concomitant]
     Dosage: UNK
  8. L-THYROXIN [Concomitant]
     Dosage: UNK
  9. LAMOTRIGIN [Concomitant]
     Dosage: UNK
  10. MIRTAZAPINE [Concomitant]
     Dosage: UNK
  11. CALCIGEN D3 [Concomitant]
     Dosage: UNK
  12. DERMATOP [Concomitant]
     Dosage: UNK
     Dates: start: 20120621

REACTIONS (1)
  - Skin lesion [Not Recovered/Not Resolved]
